FAERS Safety Report 7611962-3 (Version None)
Quarter: 2011Q3

REPORT INFORMATION
  Report Type: 
  Country: None (occurrence: None)
  Receive Date: 20110715
  Receipt Date: 20110705
  Transmission Date: 20111222
  Serious: Yes (Hospitalization)
  Sender: FDA-Public Use
  Company Number: NL-ABBOTT-11P-114-0729793-00

PATIENT
  Sex: Male

DRUGS (21)
  1. METOCLOPRAMIDE [Concomitant]
     Indication: PRODUCT USED FOR UNKNOWN INDICATION
     Route: 048
     Dates: start: 20110620
  2. FELODIPINE RETARD [Concomitant]
     Indication: PRODUCT USED FOR UNKNOWN INDICATION
     Route: 048
     Dates: start: 20110620
  3. MELOXICAM [Concomitant]
     Indication: PRODUCT USED FOR UNKNOWN INDICATION
     Route: 048
     Dates: start: 20110620
  4. HUMIRA [Suspect]
     Indication: RHEUMATOID ARTHRITIS
     Route: 051
     Dates: start: 20110106
  5. MEBERVERINE [Concomitant]
     Indication: PRODUCT USED FOR UNKNOWN INDICATION
     Route: 048
     Dates: start: 20100922, end: 20110620
  6. METOPROLOL SUCCINATE RET [Concomitant]
     Indication: PRODUCT USED FOR UNKNOWN INDICATION
     Route: 048
     Dates: start: 20110620
  7. AMITRIPTYLINE HCL [Concomitant]
     Indication: PRODUCT USED FOR UNKNOWN INDICATION
     Route: 048
     Dates: start: 20110524
  8. ACETAMINOPHEN [Concomitant]
     Indication: PRODUCT USED FOR UNKNOWN INDICATION
     Route: 048
     Dates: start: 20110223, end: 20110303
  9. HUMIRA [Suspect]
     Dates: start: 20110616
  10. SULFASALAZINE [Concomitant]
     Indication: PRODUCT USED FOR UNKNOWN INDICATION
     Dates: start: 20110524
  11. SULFASALAZINE [Concomitant]
     Indication: PRODUCT USED FOR UNKNOWN INDICATION
     Route: 048
     Dates: start: 20100921
  12. LOMUSOL FORTE [Concomitant]
     Indication: PRODUCT USED FOR UNKNOWN INDICATION
     Dosage: 2 DROPS IN EVERY NOSTRIL BID
     Route: 045
     Dates: start: 20110622
  13. DESLORATADINE [Concomitant]
     Indication: PRODUCT USED FOR UNKNOWN INDICATION
     Route: 048
     Dates: start: 20110622
  14. DUSPATALIN RETARD [Concomitant]
     Indication: PRODUCT USED FOR UNKNOWN INDICATION
     Dates: start: 20100921
  15. ESOMEPRAZOLE MAGNESIUM [Concomitant]
     Indication: PRODUCT USED FOR UNKNOWN INDICATION
     Route: 048
     Dates: start: 20110620
  16. MEBERVERINE HCL RETARD [Concomitant]
     Indication: PRODUCT USED FOR UNKNOWN INDICATION
     Route: 048
     Dates: start: 20110620
  17. TRAMADOL HCL RETARD [Concomitant]
     Indication: PRODUCT USED FOR UNKNOWN INDICATION
     Route: 048
     Dates: start: 20110415, end: 20110614
  18. AMITRIPTYLINE HCL [Concomitant]
     Route: 048
     Dates: start: 20110524
  19. RHINOCORT [Concomitant]
     Indication: PRODUCT USED FOR UNKNOWN INDICATION
     Dosage: 64MCG/120DOSES 1 DROP EVERY NOSTRIL BID
     Route: 045
     Dates: start: 20110622
  20. NEXIUM [Concomitant]
     Indication: PRODUCT USED FOR UNKNOWN INDICATION
     Route: 048
     Dates: start: 20110104, end: 20110620
  21. XYLOMETHAZOLIN [Concomitant]
     Indication: PRODUCT USED FOR UNKNOWN INDICATION
     Dosage: 3 TIMES A DAY 1 SPRAY IN EACH NOSTRIL
     Route: 045
     Dates: start: 20110216, end: 20110301

REACTIONS (6)
  - GASTROINTESTINAL INFLAMMATION [None]
  - VOMITING [None]
  - FATIGUE [None]
  - HAEMATOCHEZIA [None]
  - DECREASED APPETITE [None]
  - PYREXIA [None]
